FAERS Safety Report 7031273-7 (Version None)
Quarter: 2010Q4

REPORT INFORMATION
  Report Type: 
  Country: None (occurrence: None)
  Receive Date: 20101006
  Receipt Date: 20101001
  Transmission Date: 20110411
  Serious: Yes (Death)
  Sender: FDA-Public Use
  Company Number: A0885081A

PATIENT
  Sex: Female
  Weight: 73 kg

DRUGS (10)
  1. SERETIDE [Suspect]
     Dosage: 1PUFF TWICE PER DAY
     Dates: start: 20060101, end: 20100907
  2. ACETYLCYSTEINE [Concomitant]
     Dosage: 1SAC AT NIGHT
     Dates: start: 20060101, end: 20100907
  3. PENTOXIFYLLINE [Concomitant]
     Dosage: 400MG TWICE PER DAY
     Dates: start: 20050101, end: 20100907
  4. ALLOPURINOL [Concomitant]
     Dosage: 100MG PER DAY
     Dates: start: 20090401, end: 20100907
  5. BUMETANIDE [Concomitant]
     Dates: start: 20090101
  6. LOSARTAN [Concomitant]
     Dosage: 25MG PER DAY
     Dates: start: 20090101
  7. SIMVASTATIN [Concomitant]
     Dosage: 10MG PER DAY
     Dates: start: 20000101
  8. ACETYLSALICYLIC ACID SRT [Concomitant]
     Dosage: 1TAB PER DAY
     Dates: start: 20000101
  9. DIAZEPAM [Concomitant]
     Dosage: 10MG AT NIGHT
     Dates: start: 20060101
  10. LOXONIN [Concomitant]
     Dosage: 60MG AT NIGHT
     Dates: start: 20060101

REACTIONS (2)
  - INFECTION [None]
  - LUNG INFECTION [None]
